FAERS Safety Report 6435571-7 (Version None)
Quarter: 2009Q4

REPORT INFORMATION
  Report Type: 
  Country: None (occurrence: None)
  Receive Date: 20091111
  Receipt Date: 20091030
  Transmission Date: 20100525
  Serious: Yes (Other)
  Sender: FDA-Public Use
  Company Number: US-JNJFOC-20091100366

PATIENT
  Sex: Female
  Weight: 69.4 kg

DRUGS (13)
  1. SIMPONI [Suspect]
     Indication: RHEUMATOID ARTHRITIS
     Route: 058
  2. FOLIC ACID [Concomitant]
     Route: 048
  3. AZULFIDINE [Concomitant]
     Route: 048
  4. DARVOCET-N 100 [Concomitant]
     Indication: PAIN
  5. IMURAN [Concomitant]
     Route: 048
  6. LEVOXYL [Concomitant]
     Route: 048
  7. NORVASC [Concomitant]
     Route: 048
  8. LIPITOR [Concomitant]
     Route: 048
  9. PREVACID [Concomitant]
     Route: 048
  10. MOBIC [Concomitant]
     Route: 048
  11. FEMARA [Concomitant]
     Route: 048
  12. PREDNISONE [Concomitant]
     Route: 048
  13. CALCIUM WITH VITAMIN D [Concomitant]
     Route: 048

REACTIONS (2)
  - MEDICAL DEVICE COMPLICATION [None]
  - SQUAMOUS CELL CARCINOMA [None]
